FAERS Safety Report 11919886 (Version 1)
Quarter: 2016Q1

REPORT INFORMATION
  Report Type: Report from Study
  Country: ES (occurrence: ES)
  Receive Date: 20160115
  Receipt Date: 20160115
  Transmission Date: 20160526
  Serious: Yes (Death, Other)
  Sender: FDA-Public Use
  Company Number: ES-PFIZER INC-2016011574

PATIENT
  Sex: Male

DRUGS (4)
  1. TEMOZOLOMIDE. [Suspect]
     Active Substance: TEMOZOLOMIDE
     Dosage: 100 MG/M2, SINGLE (BEFORE EVERY IRINOTECAN INFUSION)
     Route: 048
  2. ATROPINE. [Concomitant]
     Active Substance: ATROPINE
     Dosage: 0.25 MG, CYCLIC (BEFORE EVERY IRINOTECAN INFUSION)
     Route: 058
  3. IRINOTECAN HCL [Suspect]
     Active Substance: IRINOTECAN HYDROCHLORIDE
     Indication: GLIOBLASTOMA
     Dosage: 115 MG/M2, CYCLIC (ON DAYS 8 AND 22 OF 28-DAY CYCLES)
     Route: 042
  4. TEMOZOLOMIDE. [Suspect]
     Active Substance: TEMOZOLOMIDE
     Indication: GLIOBLASTOMA
     Dosage: 50 MG/M2, DAILY
     Route: 048

REACTIONS (4)
  - Pneumonia [Fatal]
  - Thrombocytopenia [Unknown]
  - Lymphopenia [Unknown]
  - Neutropenia [Unknown]
